FAERS Safety Report 11374343 (Version 1)
Quarter: 2015Q3

REPORT INFORMATION
  Report Type: Spontaneous
  Country: US (occurrence: None)
  Receive Date: 20150812
  Receipt Date: 20150812
  Transmission Date: 20151125
  Serious: No
  Sender: FDA-Public Use
  Company Number: None

PATIENT
  Age: 61 Year
  Sex: Female

DRUGS (1)
  1. PLEGRIDY [Suspect]
     Active Substance: PEGINTERFERON BETA-1A
     Dosage: Q14D
     Route: 058
     Dates: start: 20150302, end: 20150414

REACTIONS (2)
  - Malaise [None]
  - Urinary tract infection [None]

NARRATIVE: CASE EVENT DATE: 20150417
